FAERS Safety Report 7008751-X (Version None)
Quarter: 2010Q3

REPORT INFORMATION
  Report Type: 
  Country: None (occurrence: None)
  Receive Date: 20100921
  Receipt Date: 20100916
  Transmission Date: 20110219
  Serious: Yes (Other)
  Sender: FDA-Public Use
  Company Number: A0881568A

PATIENT
  Age: 88 Year
  Sex: Female

DRUGS (1)
  1. GLUCOSE OXIDASE+LACTOPEROXIDASE+LYSOZYME+NO MONOFLUOROPHOSPH (GLUCOSE [Suspect]
     Indication: DENTAL CLEANING
     Dosage: DENTAL
     Route: 004

REACTIONS (1)
  - LOSS OF CONSCIOUSNESS [None]
